FAERS Safety Report 4533115-8 (Version None)
Quarter: 2004Q4

REPORT INFORMATION
  Report Type: 
  Country: None (occurrence: None)
  Receive Date: 20041206
  Receipt Date: 20041013
  Transmission Date: 20050328
  Serious: No
  Sender: FDA-Public Use
  Company Number: USA041081127

PATIENT
  Age: 40 Year
  Sex: Male
  Weight: 55 kg

DRUGS (3)
  1. CYMBALTA (DULOXETINE HYDROCHLORIDE) [Suspect]
     Dosage: 30 MG/2 DAY
     Dates: start: 20041001, end: 20041001
  2. LEVOXYL [Concomitant]
  3. KADIAN [Concomitant]

REACTIONS (3)
  - HEADACHE [None]
  - MIGRAINE [None]
  - STOMACH DISCOMFORT [None]
